FAERS Safety Report 15864925 (Version 2)
Quarter: 2019Q1

REPORT INFORMATION
  Report Type: Spontaneous
  Country: ES (occurrence: ES)
  Receive Date: 20190124
  Receipt Date: 20190222
  Transmission Date: 20190417
  Serious: Yes (Hospitalization, Other)
  Sender: FDA-Public Use
  Company Number: ES-SEATTLE GENETICS-2019SGN00122

PATIENT
  Age: 25 Year
  Sex: Female
  Weight: 75 kg

DRUGS (2)
  1. ADCETRIS [Suspect]
     Active Substance: BRENTUXIMAB VEDOTIN
     Indication: HODGKIN^S DISEASE
     Dosage: 1.8 MILLIGRAM/KILOGRAM, Q21D
     Route: 042
     Dates: start: 20181227, end: 20181227
  2. BENDAMUSTINE [Concomitant]
     Active Substance: BENDAMUSTINE
     Indication: HODGKIN^S DISEASE
     Dosage: 90 MILLIGRAM/SQ. METER, Q21D
     Route: 065
     Dates: start: 20181227, end: 20181228

REACTIONS (2)
  - Adenoviral encephalitis [Recovered/Resolved]
  - Off label use [Unknown]

NARRATIVE: CASE EVENT DATE: 20190112
